FAERS Safety Report 16343836 (Version 2)
Quarter: 2019Q4

REPORT INFORMATION
  Report Type: Spontaneous
  Country: US (occurrence: US)
  Receive Date: 20190522
  Receipt Date: 20191014
  Transmission Date: 20200122
  Serious: No
  Sender: FDA-Public Use
  Company Number: US-PFIZER INC-2019219640

PATIENT
  Age: 55 Year
  Sex: Female
  Weight: 67.12 kg

DRUGS (1)
  1. LYRICA [Suspect]
     Active Substance: PREGABALIN
     Dosage: 225 MG, ONCE IN A DAY (EVERY BEDTIME)
     Route: 048

REACTIONS (1)
  - Malaise [Unknown]
